FAERS Safety Report 9379897 (Version 1)
Quarter: 2013Q3

REPORT INFORMATION
  Report Type: Spontaneous
  Country: US (occurrence: None)
  Receive Date: 20130701
  Receipt Date: 20130701
  Transmission Date: 20140515
  Serious: Yes (Hospitalization)
  Sender: FDA-Public Use
  Company Number: None

PATIENT
  Age: 76 Year
  Sex: Female
  Weight: 75.3 kg

DRUGS (3)
  1. DOXORUBICIN HYDROCHLORIDE [Suspect]
  2. CYCLOPHOSPHAMIDE [Suspect]
  3. DOCETAXEL (TAXOTERE) [Suspect]

REACTIONS (5)
  - Cerebrovascular accident [None]
  - Pneumonia [None]
  - Left ventricular dysfunction [None]
  - Atrial fibrillation [None]
  - Pulmonary embolism [None]
